FAERS Safety Report 16595062 (Version 1)
Quarter: 2019Q3

REPORT INFORMATION
  Report Type: Report from Study
  Country: US (occurrence: US)
  Receive Date: 20190718
  Receipt Date: 20190718
  Transmission Date: 20191004
  Serious: Yes (Death)
  Sender: FDA-Public Use
  Company Number: US-ACTELION-A-NJ2019-186585

PATIENT
  Age: 59 Year
  Sex: Female

DRUGS (5)
  1. TADALAFIL. [Concomitant]
     Active Substance: TADALAFIL
  2. UPTRAVI [Suspect]
     Active Substance: SELEXIPAG
     Dosage: 1000 MCG, BID
     Route: 048
  3. UPTRAVI [Suspect]
     Active Substance: SELEXIPAG
     Dosage: 1200 MCG, BID
     Route: 048
  4. LETAIRIS [Concomitant]
     Active Substance: AMBRISENTAN
  5. UPTRAVI [Suspect]
     Active Substance: SELEXIPAG
     Indication: PULMONARY HYPERTENSION
     Dosage: 800 MCG, BID
     Route: 048

REACTIONS (21)
  - Head injury [Unknown]
  - Hot flush [Unknown]
  - Pain in extremity [Unknown]
  - Fall [Unknown]
  - Neck pain [Unknown]
  - Syncope [Unknown]
  - Loss of personal independence in daily activities [Unknown]
  - Cough [Unknown]
  - Dyspnoea [Unknown]
  - Death [Fatal]
  - Weight decreased [Unknown]
  - Nausea [Unknown]
  - Exercise tolerance decreased [Unknown]
  - Dyspnoea exertional [Unknown]
  - Oxygen consumption increased [Unknown]
  - Dizziness [Unknown]
  - Fatigue [Unknown]
  - Muscle spasms [Unknown]
  - Decreased appetite [Unknown]
  - Loss of consciousness [Unknown]
  - Choking sensation [Unknown]

NARRATIVE: CASE EVENT DATE: 20190402
